FAERS Safety Report 8890470 (Version 3)
Quarter: 2012Q4

REPORT INFORMATION
  Report Type: 
  Country: US (occurrence: US)
  Receive Date: 20121107
  Receipt Date: 20121120
  Transmission Date: 20130627
  Serious: Yes (Disabling, Other)
  Sender: FDA-Public Use
  Company Number: US-TEVA-368124USA

PATIENT
  Sex: Female
  Weight: 50.85 kg

DRUGS (4)
  1. VENLAFAXINE [Suspect]
     Indication: ANXIETY
     Dosage: 150 Milligram Daily;
     Route: 048
     Dates: start: 201205, end: 201210
  2. VENLAFAXINE [Suspect]
     Indication: DEPRESSION
  3. MULTIVITAMINS [Concomitant]
  4. OMEGA 3 [Concomitant]

REACTIONS (28)
  - Drug withdrawal syndrome [Unknown]
  - Activities of daily living impaired [Recovered/Resolved]
  - Fluid retention [Recovered/Resolved]
  - Anger [Recovered/Resolved]
  - Somnolence [Recovered/Resolved]
  - Mental disorder [Recovered/Resolved]
  - Abdominal distension [Recovered/Resolved]
  - Discomfort [Recovered/Resolved]
  - Feeling abnormal [Recovered/Resolved]
  - Crying [Recovered/Resolved]
  - Myalgia [Recovered/Resolved]
  - Menopausal symptoms [Recovered/Resolved]
  - Insomnia [Recovered/Resolved]
  - Hostility [Recovered/Resolved]
  - Asthenia [Recovered/Resolved]
  - Malaise [Recovered/Resolved]
  - Hot flush [Recovered/Resolved]
  - Headache [Recovered/Resolved]
  - Dry mouth [Recovered/Resolved]
  - Acne cystic [Recovered/Resolved]
  - Drug ineffective [Unknown]
  - Muscular weakness [Unknown]
  - Abdominal discomfort [Unknown]
  - Dry skin [Unknown]
  - Pruritus [Unknown]
  - Anxiety [Unknown]
  - Visual impairment [Unknown]
  - Nausea [Unknown]
